FAERS Safety Report 17802305 (Version 1)
Quarter: 2020Q2

REPORT INFORMATION
  Report Type: Spontaneous
  Country: US (occurrence: US)
  Receive Date: 20200518
  Receipt Date: 20200518
  Transmission Date: 20200714
  Serious: Yes (Death)
  Sender: FDA-Public Use
  Company Number: None

PATIENT
  Age: 87 Year
  Sex: Male

DRUGS (7)
  1. PREDNISONE 5 MG TAB [Concomitant]
     Active Substance: PREDNISONE
  2. ONDANSETRON TAB 4 MG [Concomitant]
  3. CEPHALEXIN CAP 500 MG [Concomitant]
  4. SIMVASTATIN TAB 20 MG [Concomitant]
  5. LOSARTAN POT TAB 100 MG [Concomitant]
     Active Substance: LOSARTAN POTASSIUM
  6. ABIRATERONE. [Suspect]
     Active Substance: ABIRATERONE ACETATE
     Indication: PROSTATE CANCER
     Route: 048
     Dates: start: 20200324, end: 20200515
  7. HYDROCHLOROTHIAZIDE TAB 25 MG [Concomitant]

REACTIONS (1)
  - Death [None]
